FAERS Safety Report 7319707-1 (Version None)
Quarter: 2011Q1

REPORT INFORMATION
  Report Type: 
  Country: None (occurrence: None)
  Receive Date: 20110228
  Receipt Date: 20100817
  Transmission Date: 20110831
  Serious: No
  Sender: FDA-Public Use
  Company Number: A0876332A

PATIENT
  Age: 35 Year
  Sex: Female

DRUGS (4)
  1. SEROQUEL [Concomitant]
  2. LAMICTAL [Suspect]
     Dosage: 100MG PER DAY
     Route: 048
     Dates: end: 20100817
  3. ZOLOFT [Concomitant]
  4. CLONAZEPAM [Concomitant]

REACTIONS (4)
  - APHTHOUS STOMATITIS [None]
  - RASH MACULAR [None]
  - OROPHARYNGEAL PAIN [None]
  - PYREXIA [None]
